FAERS Safety Report 24211486 (Version 2)
Quarter: 2024Q3

REPORT INFORMATION
  Report Type: Report from Study
  Country: FR (occurrence: FR)
  Receive Date: 20240814
  Receipt Date: 20240826
  Transmission Date: 20241016
  Serious: Yes (Hospitalization, Other)
  Sender: GILEAD
  Company Number: None

PATIENT
  Age: 56 Year
  Sex: Female
  Weight: 84 kg

DRUGS (1)
  1. SACITUZUMAB GOVITECAN-HZIY [Suspect]
     Active Substance: SACITUZUMAB GOVITECAN-HZIY
     Indication: Breast cancer metastatic
     Dosage: 10 MG/KG I.E., 840 MG ON D1 AND D8 OF EACH CYCLE - 21-DAY CYCLE
     Route: 042
     Dates: start: 20240621, end: 20240628

REACTIONS (4)
  - Cholestasis [Not Recovered/Not Resolved]
  - Colitis [Recovered/Resolved]
  - Hyperthyroidism [Unknown]
  - Pancytopenia [Recovered/Resolved]

NARRATIVE: CASE EVENT DATE: 20240629
